APPROVED DRUG PRODUCT: PENTOTHAL
Active Ingredient: THIOPENTAL SODIUM
Strength: 400MG/GM
Dosage Form/Route: SUSPENSION;RECTAL
Application: N011679 | Product #001
Applicant: ABBOTT LABORATORIES HOSP PRODUCTS DIV
Approved: Approved Prior to Jan 1, 1982 | RLD: No | RS: No | Type: DISCN